FAERS Safety Report 13704628 (Version 1)
Quarter: 2017Q2

REPORT INFORMATION
  Report Type: Spontaneous
  Country: US (occurrence: US)
  Receive Date: 20170629
  Receipt Date: 20170629
  Transmission Date: 20170830
  Serious: Yes (Disabling, Other)
  Sender: FDA-Public Use
  Company Number: None

PATIENT
  Age: 80 Year
  Sex: Female
  Weight: 58.5 kg

DRUGS (12)
  1. CENTRUM SILVER [Concomitant]
     Active Substance: MINERALS\VITAMINS
  2. MILK THISTLE [Concomitant]
     Active Substance: MILK THISTLE
  3. AYR [Concomitant]
  4. POWERADE ZERO [Concomitant]
  5. BIOTIN [Concomitant]
     Active Substance: BIOTIN
  6. CRANBERRY PILL [Concomitant]
     Active Substance: CRANBERRY
  7. LOSARTAN. [Suspect]
     Active Substance: LOSARTAN
     Indication: HYPERTENSION
     Dosage: ?          OTHER STRENGTH:MG;QUANTITY:30 TABLET(S);?
     Route: 048
  8. LOW DOSE ASPIRIN [Concomitant]
     Active Substance: ASPIRIN
  9. CALCIUM + D3 [Concomitant]
     Active Substance: CALCIUM\CHOLECALCIFEROL
  10. MAGNESIUM [Concomitant]
     Active Substance: MAGNESIUM
  11. COZAAR [Concomitant]
     Active Substance: LOSARTAN POTASSIUM
  12. TUMS [Concomitant]
     Active Substance: CALCIUM CARBONATE

REACTIONS (18)
  - Diarrhoea [None]
  - Pruritus [None]
  - Tinnitus [None]
  - Dysphonia [None]
  - Fatigue [None]
  - Cough [None]
  - Musculoskeletal pain [None]
  - Fall [None]
  - Asthenia [None]
  - Muscle disorder [None]
  - Muscle spasms [None]
  - Urinary tract infection [None]
  - Balance disorder [None]
  - Rash [None]
  - Eye infection [None]
  - Faeces discoloured [None]
  - Chest discomfort [None]
  - Formication [None]

NARRATIVE: CASE EVENT DATE: 20150328
